FAERS Safety Report 13285202 (Version 2)
Quarter: 2017Q1

REPORT INFORMATION
  Report Type: Spontaneous
  Country: US (occurrence: US)
  Receive Date: 20170301
  Receipt Date: 20170302
  Transmission Date: 20170428
  Serious: Yes (Other)
  Sender: FDA-Public Use
  Company Number: US-TEVA-742454USA

PATIENT
  Age: 53 Year
  Sex: Female

DRUGS (19)
  1. ASPIRIN. [Concomitant]
     Active Substance: ASPIRIN
  2. PROBIOTICA [Concomitant]
     Active Substance: PROBIOTICS NOS
  3. CHANTIX [Concomitant]
     Active Substance: VARENICLINE TARTRATE
  4. GABAPENTIN. [Concomitant]
     Active Substance: GABAPENTIN
  5. TRAMADOL. [Concomitant]
     Active Substance: TRAMADOL
  6. CRESTOR [Concomitant]
     Active Substance: ROSUVASTATIN CALCIUM
  7. ALPRAZOLAM. [Concomitant]
     Active Substance: ALPRAZOLAM
  8. FERROUS [Concomitant]
     Active Substance: IRON
  9. MULTIVITAMIN [Concomitant]
     Active Substance: VITAMINS
  10. ZANTAC [Concomitant]
     Active Substance: RANITIDINE HYDROCHLORIDE
  11. CITALOPRAM [Concomitant]
     Active Substance: CITALOPRAM HYDROBROMIDE
  12. CYCLOBENZAPRINE [Concomitant]
     Active Substance: CYCLOBENZAPRINE
  13. CYMBALTA [Concomitant]
     Active Substance: DULOXETINE HYDROCHLORIDE
  14. LEVOTHYROXINE. [Concomitant]
     Active Substance: LEVOTHYROXINE
  15. ZYLOPRIM [Concomitant]
     Active Substance: ALLOPURINOL
  16. COPAXONE [Suspect]
     Active Substance: GLATIRAMER ACETATE
     Indication: MULTIPLE SCLEROSIS
     Route: 058
  17. TYLENOL [Concomitant]
     Active Substance: ACETAMINOPHEN
  18. VITAMIN D3 [Concomitant]
     Active Substance: CHOLECALCIFEROL
  19. DICLOFENAC [Concomitant]
     Active Substance: DICLOFENAC

REACTIONS (1)
  - Urinary retention [Not Recovered/Not Resolved]

NARRATIVE: CASE EVENT DATE: 20170220
